FAERS Safety Report 5608076-0 (Version None)
Quarter: 2008Q1

REPORT INFORMATION
  Report Type: 
  Country: None (occurrence: None)
  Receive Date: 20080130
  Receipt Date: 20080118
  Transmission Date: 20080703
  Serious: Yes (Hospitalization)
  Sender: FDA-Public Use
  Company Number: US-ASTRAZENECA-2008UW01399

PATIENT
  Age: 510 Month
  Sex: Female
  Weight: 93.2 kg

DRUGS (4)
  1. SEROQUEL [Suspect]
     Indication: BIPOLAR DISORDER
     Dosage: VARIOUS INCLUDING BUT NOT LIMITED TO 200 MG
     Route: 048
     Dates: start: 20051101, end: 20060501
  2. ABILIFY [Concomitant]
     Dates: start: 20061001
  3. RISPERDAL [Concomitant]
     Dates: start: 20050101
  4. ZYPREXA [Concomitant]
     Dates: start: 20050101

REACTIONS (5)
  - BIPOLAR DISORDER [None]
  - BLOOD CHOLESTEROL INCREASED [None]
  - DIABETES MELLITUS [None]
  - POST-TRAUMATIC STRESS DISORDER [None]
  - SUICIDE ATTEMPT [None]
